FAERS Safety Report 7534228-9 (Version None)
Quarter: 2011Q2

REPORT INFORMATION
  Report Type: 
  Country: None (occurrence: None)
  Receive Date: 20110608
  Receipt Date: 20061218
  Transmission Date: 20111010
  Serious: Yes (Death, Other)
  Sender: FDA-Public Use
  Company Number: PHMT2006CA02196

PATIENT
  Sex: Male

DRUGS (9)
  1. ATIVAN [Concomitant]
  2. ZOFRAN [Concomitant]
  3. K-DUR [Concomitant]
  4. PANTOPRAZOLE SODIUM [Concomitant]
  5. PROCHLORPERAZINE TAB [Concomitant]
  6. SANDOSTATIN LAR [Suspect]
     Indication: RECTAL CANCER
     Dosage: 20 MG, FOR EVERY 4 WEEKS
     Dates: start: 20050822, end: 20061122
  7. DEMEROL [Concomitant]
  8. NAPROSYN [Concomitant]
  9. LOMOTIL [Concomitant]

REACTIONS (3)
  - GENERAL PHYSICAL HEALTH DETERIORATION [None]
  - DEATH [None]
  - JAUNDICE [None]
